FAERS Safety Report 6046096-5 (Version None)
Quarter: 2009Q1

REPORT INFORMATION
  Report Type: 
  Country: None (occurrence: None)
  Receive Date: 20090121
  Receipt Date: 20090121
  Transmission Date: 20090719
  Serious: No
  Sender: FDA-Public Use
  Company Number: None

PATIENT
  Sex: Female
  Weight: 58.9676 kg

DRUGS (8)
  1. ESTRADIOL [Suspect]
     Indication: MENOPAUSAL SYMPTOMS
     Dosage: 0.075 MG WEEKLY TRANSDERM
     Route: 062
     Dates: start: 20081201, end: 20081228
  2. MAXAIR [Concomitant]
  3. PATENOL [Concomitant]
  4. FLUTICASONE PROPIONATE [Concomitant]
  5. IMITREX [Concomitant]
  6. CLONAZEPAM [Concomitant]
  7. PROGESTERONE [Concomitant]
  8. TESTOSTERONE [Concomitant]

REACTIONS (4)
  - APPLICATION SITE ERYTHEMA [None]
  - APPLICATION SITE PRURITUS [None]
  - APPLICATION SITE RASH [None]
  - SCAB [None]
